FAERS Safety Report 18286670 (Version 1)
Quarter: 2020Q3

REPORT INFORMATION
  Report Type: Spontaneous
  Country: DK (occurrence: DK)
  Receive Date: 20200921
  Receipt Date: 20200921
  Transmission Date: 20201103
  Serious: Yes (Hospitalization)
  Sender: FDA-Public Use
  Company Number: DK-BIOGEN-2020BI00924391

PATIENT
  Age: 30 Year
  Sex: Female
  Weight: 115 kg

DRUGS (7)
  1. SIRDALUD MR [Concomitant]
     Active Substance: TIZANIDINE
     Indication: PAIN IN EXTREMITY
     Dosage: STRENGTH: 6 MG.
     Route: 048
     Dates: start: 20171012
  2. BUVENTOL EASYHALER [Concomitant]
     Active Substance: ALBUTEROL SULFATE
     Indication: ASTHMA
     Dosage: STRENGTH: 100 MICROGRAMS/DOSE; AS NECESSARY
     Route: 055
     Dates: start: 20150820
  3. GIONA EASYHALER [Concomitant]
     Active Substance: BUDESONIDE
     Indication: ASTHMA
     Dosage: STRENGTH: 200 MICROGRAMS/DOSE.
     Route: 055
     Dates: start: 20150820
  4. TYSABRI [Suspect]
     Active Substance: NATALIZUMAB
     Indication: MULTIPLE SCLEROSIS
     Dosage: STRENGTH: 300 MG.
     Route: 042
     Dates: start: 20170519
  5. LYRICA [Concomitant]
     Active Substance: PREGABALIN
     Indication: NEURALGIA
     Dosage: STRENGTH: 150 MG.
     Route: 048
     Dates: start: 20171012
  6. DOLOL (TRAMADOL HYDROCHOLIDE) [Concomitant]
     Indication: PAIN
     Dosage: DOSE: UNKNOWN. INTERVAL: AT NESCESSARY STRENGTH: 50 MG.
     Route: 048
     Dates: start: 20170206
  7. ALNOK [Concomitant]
     Active Substance: CETIRIZINE HYDROCHLORIDE
     Indication: SEASONAL ALLERGY
     Dosage: STRENGTH: 10 MG.
     Route: 048
     Dates: start: 20171122

REACTIONS (1)
  - Blood disorder [Not Recovered/Not Resolved]
